FAERS Safety Report 8807002 (Version 1)
Quarter: 2012Q4

REPORT INFORMATION
  Report Type: 
  Country: US (occurrence: US)
  Receive Date: 20120925
  Receipt Date: 20120925
  Transmission Date: 20130627
  Serious: Yes (Death)
  Sender: FDA-Public Use
  Company Number: US-ROCHE-1097023

PATIENT
  Sex: Female

DRUGS (2)
  1. AVASTIN [Suspect]
     Indication: BREAST CANCER FEMALE
     Route: 065
     Dates: start: 20060613
  2. AVASTIN [Suspect]
     Indication: BREAST CANCER

REACTIONS (4)
  - Death [Fatal]
  - Polyglandular disorder [Unknown]
  - Neutropenia [Unknown]
  - Metastases to lymph nodes [Unknown]
